FAERS Safety Report 19899517 (Version 3)
Quarter: 2021Q4

REPORT INFORMATION
  Report Type: Spontaneous
  Country: JP (occurrence: JP)
  Receive Date: 20210930
  Receipt Date: 20211111
  Transmission Date: 20220303
  Serious: Yes (Death, Hospitalization, Other)
  Sender: FDA-Public Use
  Company Number: JP-NOVARTISPH-NVSJ2021JP014438

PATIENT
  Age: 53 Year
  Sex: Female
  Weight: 51.3 kg

DRUGS (7)
  1. AFINITOR [Suspect]
     Active Substance: EVEROLIMUS
     Indication: Cervix carcinoma
     Dosage: 10 MG, QD
     Route: 048
     Dates: start: 20210527, end: 20210818
  2. AFINITOR [Suspect]
     Active Substance: EVEROLIMUS
     Indication: Cervix carcinoma
  3. PYRIDOXAL [Concomitant]
     Active Substance: PYRIDOXAL
     Indication: Product used for unknown indication
     Dosage: 10 MG, TID AFTER EACH MEAL
     Route: 065
     Dates: start: 20210617, end: 20210819
  4. LOPERAMIDE HYDROCHLORIDE [Concomitant]
     Active Substance: LOPERAMIDE HYDROCHLORIDE
     Indication: Product used for unknown indication
     Dosage: 1 MG, BID AFTER BREAKFAST AND SUPPER
     Route: 048
     Dates: start: 20210810, end: 20210818
  5. BERBERINE\GERANIUM [Concomitant]
     Active Substance: BERBERINE\GERANIUM
     Indication: Product used for unknown indication
     Dosage: 2 DF, TID AFTER EACH MEAL
     Route: 048
     Dates: start: 20210803, end: 20210818
  6. TAGAMET [Concomitant]
     Active Substance: CIMETIDINE
     Indication: Product used for unknown indication
     Dosage: 200 MG, TID AFTER EACH MEAL
     Route: 048
     Dates: start: 20210803, end: 20210818
  7. ACETAMINOPHEN [Concomitant]
     Active Substance: ACETAMINOPHEN
     Indication: Product used for unknown indication
     Dosage: UNK
     Route: 065

REACTIONS (5)
  - Lung disorder [Fatal]
  - Enterocolitis [Recovered/Resolved]
  - Nephropathy toxic [Recovering/Resolving]
  - Dehydration [Unknown]
  - Micturition disorder [Unknown]

NARRATIVE: CASE EVENT DATE: 20210819
